FAERS Safety Report 5330261-6 (Version None)
Quarter: 2007Q2

REPORT INFORMATION
  Report Type: 
  Country: None (occurrence: None)
  Receive Date: 20070521
  Receipt Date: 20070507
  Transmission Date: 20071010
  Serious: Yes (Hospitalization)
  Sender: FDA-Public Use
  Company Number: US-ELI_LILLY_AND_COMPANY-US200704001177

PATIENT
  Sex: Female

DRUGS (3)
  1. GLIPIZIDE [Concomitant]
     Dosage: 10 MG, 2/D
     Route: 065
  2. BYETTA [Suspect]
     Dosage: 10 UG, UNK
     Route: 058
     Dates: start: 20060716, end: 20060716
  3. BYETTA [Suspect]
     Dosage: 5 UG, UNK
     Route: 058

REACTIONS (3)
  - DRUG DISPENSING ERROR [None]
  - HYPOGLYCAEMIA [None]
  - INCORRECT DOSE ADMINISTERED [None]
